FAERS Safety Report 8368108-6 (Version None)
Quarter: 2012Q2

REPORT INFORMATION
  Report Type: 
  Country: None (occurrence: None)
  Receive Date: 20120517
  Receipt Date: 20120514
  Transmission Date: 20120825
  Serious: Yes (Other)
  Sender: FDA-Public Use
  Company Number: FR-AMGEN-FRACT2012030209

PATIENT
  Age: 83 Year
  Sex: Male

DRUGS (1)
  1. ROMIPLOSTIM [Suspect]
     Indication: THROMBOCYTOPENIA
     Dosage: 1000 MUG, QWK
     Route: 058
     Dates: start: 20090831, end: 20120101

REACTIONS (1)
  - THROMBOCYTOPENIA [None]
